FAERS Safety Report 9147208 (Version 1)
Quarter: 2013Q1

REPORT INFORMATION
  Report Type: Spontaneous
  Country: FR (occurrence: FR)
  Receive Date: 20130307
  Receipt Date: 20130307
  Transmission Date: 20140127
  Serious: Yes (Hospitalization)
  Sender: FDA-Public Use
  Company Number: FR-ASTRAZENECA-2013SE13328

PATIENT
  Age: 904 Month
  Sex: Female

DRUGS (7)
  1. CRESTOR [Suspect]
     Route: 048
     Dates: end: 20130110
  2. VALSARTAN [Suspect]
     Route: 048
     Dates: end: 20130109
  3. LODOZ [Suspect]
     Dosage: 10 MG / 6.25 MG
     Route: 048
     Dates: end: 20130110
  4. ZYLORIC [Suspect]
     Route: 048
     Dates: end: 20130111
  5. VICTOZA [Suspect]
     Route: 048
     Dates: end: 20130110
  6. EUPRESSYL [Suspect]
     Route: 048
     Dates: end: 20130109
  7. STRESAM [Concomitant]

REACTIONS (2)
  - Hypotension [Recovering/Resolving]
  - Malaise [Recovered/Resolved]
